FAERS Safety Report 11871827 (Version 1)
Quarter: 2015Q4

REPORT INFORMATION
  Report Type: Spontaneous
  Country: JP (occurrence: JP)
  Receive Date: 20151228
  Receipt Date: 20151228
  Transmission Date: 20160305
  Serious: Yes (Other)
  Sender: FDA-Public Use
  Company Number: JP-BAYER-2015-491086

PATIENT
  Sex: Female

DRUGS (2)
  1. NIFEDIPINE. [Suspect]
     Active Substance: NIFEDIPINE
     Indication: THREATENED LABOUR
     Route: 064
  2. NIFEDIPINE. [Suspect]
     Active Substance: NIFEDIPINE
     Indication: THREATENED LABOUR
     Route: 064

REACTIONS (4)
  - Low birth weight baby [None]
  - Foetal exposure during pregnancy [Recovered/Resolved]
  - Ventricular septal defect [None]
  - Coarctation of the aorta [None]
